FAERS Safety Report 13022347 (Version 1)
Quarter: 2016Q4

REPORT INFORMATION
  Report Type: Spontaneous
  Country: US (occurrence: US)
  Receive Date: 20161213
  Receipt Date: 20161213
  Transmission Date: 20170207
  Serious: No
  Sender: FDA-Public Use
  Company Number: US-PFIZER INC-2016574814

PATIENT
  Age: 72 Year
  Sex: Male
  Weight: 125.19 kg

DRUGS (1)
  1. SUTENT [Suspect]
     Active Substance: SUNITINIB MALATE
     Indication: METASTATIC RENAL CELL CARCINOMA
     Dosage: 50 MG, CYCLIC (50MG CAPSULE TWO WEEKS ON AND ONE WEEK OFF)
     Route: 048

REACTIONS (4)
  - Dysgeusia [Recovered/Resolved]
  - Malaise [Unknown]
  - Bronchitis [Recovering/Resolving]
  - Depressed mood [Unknown]
